FAERS Safety Report 7653019-1 (Version None)
Quarter: 2011Q3

REPORT INFORMATION
  Report Type: 
  Country: None (occurrence: None)
  Receive Date: 20110803
  Receipt Date: 20110719
  Transmission Date: 20111222
  Serious: Yes (Death)
  Sender: FDA-Public Use
  Company Number: CA-ROCHE-791346

PATIENT
  Age: 50 Year

DRUGS (7)
  1. FENTANYL CITRATE [Suspect]
     Route: 008
  2. OXYCODONE HCL [Suspect]
     Route: 065
  3. PERCOCET [Concomitant]
  4. DIPHENHYDRAMINE HCL [Suspect]
     Route: 065
  5. DIAZEPAM [Suspect]
     Route: 065
  6. PAROXETINE HCL [Suspect]
     Route: 065
  7. FENTANYL [Suspect]
     Route: 065

REACTIONS (1)
  - TOXICITY TO VARIOUS AGENTS [None]
